FAERS Safety Report 4499390-3 (Version None)
Quarter: 2004Q4

REPORT INFORMATION
  Report Type: 
  Country: None (occurrence: None)
  Receive Date: 20041111
  Receipt Date: 20041101
  Transmission Date: 20050328
  Serious: Yes (Death, Life-Threatening, Hospitalization, Disabling)
  Sender: FDA-Public Use
  Company Number: US-MERCK-0411USA00121

PATIENT
  Age: 73 Year
  Sex: Male

DRUGS (9)
  1. VIOXX [Suspect]
     Route: 048
     Dates: start: 20010502, end: 20021021
  2. CARDIZEM [Concomitant]
     Route: 065
  3. PROZAC [Concomitant]
     Route: 065
  4. ASPIRIN [Concomitant]
     Route: 065
  5. ZOCOR [Concomitant]
     Route: 048
  6. HYTRIN [Concomitant]
     Route: 065
  7. TRUSOPT [Concomitant]
     Route: 047
  8. DARVOCET-N 100 [Concomitant]
     Route: 065
  9. XANAX [Concomitant]
     Route: 065

REACTIONS (1)
  - MYOCARDIAL INFARCTION [None]
